FAERS Safety Report 5840271-8 (Version None)
Quarter: 2008Q3

REPORT INFORMATION
  Report Type: 
  Country: None (occurrence: None)
  Receive Date: 20080807
  Receipt Date: 20080807
  Transmission Date: 20090109
  Serious: Yes (Life-Threatening)
  Sender: FDA-Public Use
  Company Number: None

PATIENT
  Sex: Male
  Weight: 65.7716 kg

DRUGS (1)
  1. PREPARATION CLEANSING KIT 1.5 PHOSPHATE GINGER LEMON WALGREEN [Suspect]
     Indication: COLONOSCOPY
     Dosage: 3 TBSP  ONCE PO  (DURATION: ONCE)
     Route: 048
     Dates: start: 20080804, end: 20080804

REACTIONS (8)
  - ARRHYTHMIA [None]
  - BLOOD CREATINE INCREASED [None]
  - BLOOD POTASSIUM DECREASED [None]
  - HEART RATE IRREGULAR [None]
  - HYPOTENSION [None]
  - LOSS OF CONSCIOUSNESS [None]
  - PALLOR [None]
  - VISUAL ACUITY REDUCED [None]
